FAERS Safety Report 7860779-3 (Version None)
Quarter: 2011Q4

REPORT INFORMATION
  Report Type: 
  Country: None (occurrence: None)
  Receive Date: 20111025
  Receipt Date: 20111011
  Transmission Date: 20120403
  Serious: Yes (Other)
  Sender: FDA-Public Use
  Company Number: AUR-APL-2011-05190

PATIENT

DRUGS (6)
  1. LISINOPRIL [Concomitant]
  2. WARFARIN SODIUM [Concomitant]
  3. LUTEIN (XANTOFYL) [Concomitant]
  4. METOPROLOL ER (METOROLOL) [Suspect]
     Indication: ATRIAL FIBRILLATION
     Dosage: (12.5 MG, 1 D), ORAL
     Route: 048
  5. ASPIRIN [Concomitant]
  6. SIMVASTATIN [Concomitant]

REACTIONS (2)
  - CARDIAC DISORDER [None]
  - DRUG INEFFECTIVE [None]
